FAERS Safety Report 4708763-2 (Version None)
Quarter: 2005Q3

REPORT INFORMATION
  Report Type: 
  Country: None (occurrence: None)
  Receive Date: 20050705
  Receipt Date: 20050624
  Transmission Date: 20060218
  Serious: Yes (Hospitalization)
  Sender: FDA-Public Use
  Company Number: 2005092214

PATIENT
  Age: 73 Year
  Sex: Male
  Weight: 80 kg

DRUGS (3)
  1. TRANKIMAZIN (ALPRAZOLAM) [Suspect]
     Indication: SLEEP DISORDER
     Dosage: (0.25 MG, 1 IN 1 D), ORAL
     Route: 048
     Dates: start: 20050301, end: 20050402
  2. SERTRALINE HCL [Suspect]
     Indication: DEPRESSION
     Dosage: (50 MG, 1 IN 1 D), ORAL
     Route: 048
     Dates: start: 20050301, end: 20050402
  3. LORMETAZEPAM (LORMETAZEPAM) [Suspect]
     Indication: SLEEP DISORDER
     Dosage: (1 MG, 1 IN 1 D), ORAL
     Route: 048
     Dates: start: 20050308, end: 20050402

REACTIONS (2)
  - GRANULOCYTOPENIA [None]
  - PYREXIA [None]
